FAERS Safety Report 8363635-X (Version None)
Quarter: 2012Q2

REPORT INFORMATION
  Report Type: 
  Country: None (occurrence: None)
  Receive Date: 20120516
  Receipt Date: 20120510
  Transmission Date: 20120825
  Serious: Yes (Hospitalization)
  Sender: FDA-Public Use
  Company Number: CA-NOVOPROD-345349

PATIENT
  Sex: Female
  Weight: 90.703 kg

DRUGS (3)
  1. LEVEMIR [Suspect]
     Indication: TYPE 2 DIABETES MELLITUS
     Dosage: 79 U, QD
     Route: 058
  2. NOVORAPID PENFILL [Suspect]
     Indication: TYPE 2 DIABETES MELLITUS
     Dosage: 18 U, QD
     Route: 058
     Dates: start: 20120119
  3. NOVORAPID PENFILL [Suspect]
     Dosage: 60 U, QD
     Route: 058

REACTIONS (4)
  - DIABETES MELLITUS INADEQUATE CONTROL [None]
  - CARDIAC DISORDER [None]
  - DRUG INEFFECTIVE [None]
  - BLOOD COUNT ABNORMAL [None]
